FAERS Safety Report 9210511 (Version 4)
Quarter: 2015Q2

REPORT INFORMATION
  Report Type: Spontaneous
  Country: US (occurrence: US)
  Receive Date: 20130404
  Receipt Date: 20150518
  Transmission Date: 20150821
  Serious: Yes (Other)
  Sender: FDA-Public Use
  Company Number: US-009507513-1304USA001021

PATIENT
  Sex: Male
  Weight: 85.71 kg

DRUGS (1)
  1. PROPECIA [Suspect]
     Active Substance: FINASTERIDE
     Indication: ALOPECIA
     Dosage: 1 MG, UNK
     Route: 048
     Dates: start: 2004, end: 2006

REACTIONS (15)
  - Costochondritis [Unknown]
  - Cognitive disorder [Not Recovered/Not Resolved]
  - Wound [Unknown]
  - Hydrocele [Unknown]
  - Type 2 diabetes mellitus [Unknown]
  - Blood testosterone decreased [Unknown]
  - Deafness [Unknown]
  - General physical condition abnormal [Unknown]
  - Sexual dysfunction [Not Recovered/Not Resolved]
  - Infertility [Unknown]
  - Meniere^s disease [Unknown]
  - Pilonidal cyst [Unknown]
  - Erectile dysfunction [Not Recovered/Not Resolved]
  - Vertigo positional [Unknown]
  - Loss of libido [Unknown]

NARRATIVE: CASE EVENT DATE: 200502
